FAERS Safety Report 6254455-0 (Version None)
Quarter: 2009Q3

REPORT INFORMATION
  Report Type: 
  Country: None (occurrence: None)
  Receive Date: 20090701
  Receipt Date: 20090701
  Transmission Date: 20100115
  Serious: Yes (Hospitalization)
  Sender: FDA-Public Use
  Company Number: None

PATIENT
  Age: 39 Year
  Sex: Female
  Weight: 98.7 kg

DRUGS (4)
  1. LISINOPRIL AND HYDROCHLOROTHIAZIDE [Suspect]
     Indication: HYPERTENSION
     Dosage: 1 TABLET DAILY PO (DATES OF USE: PAST YEAR)
     Route: 048
  2. SINGULAIR [Concomitant]
  3. PERCOCET [Concomitant]
  4. ALOE VERA CREAM [Concomitant]

REACTIONS (1)
  - ANGIOEDEMA [None]
